FAERS Safety Report 9542759 (Version 1)
Quarter: 2013Q3

REPORT INFORMATION
  Report Type: Spontaneous
  Country: US (occurrence: US)
  Receive Date: 20130923
  Receipt Date: 20130923
  Transmission Date: 20140515
  Serious: No
  Sender: FDA-Public Use
  Company Number: US-PFIZER INC-2013270326

PATIENT
  Age: 48 Year
  Sex: Female

DRUGS (3)
  1. ESTRING [Suspect]
     Indication: VULVOVAGINAL DRYNESS
     Dosage: 2 MG (ONE RING EVERY THREE MONTHS)
     Route: 067
     Dates: start: 201203
  2. TAMOXIFEN [Concomitant]
     Dosage: UNK
  3. CITALOPRAM [Concomitant]

REACTIONS (1)
  - Drug ineffective [Unknown]
